FAERS Safety Report 4448293-9 (Version None)
Quarter: 2004Q3

REPORT INFORMATION
  Report Type: 
  Country: None (occurrence: None)
  Receive Date: 20040913
  Receipt Date: 20040906
  Transmission Date: 20050211
  Serious: Yes (Hospitalization)
  Sender: FDA-Public Use
  Company Number: AU-MERCK-0409AUS00029

PATIENT
  Age: 83 Year
  Sex: Female

DRUGS (2)
  1. FOSAMAX [Suspect]
     Indication: OSTEOPOROSIS
     Route: 048
     Dates: start: 20040101, end: 20040801
  2. FOSAMAX [Suspect]
     Route: 048
     Dates: start: 20040902, end: 20040902

REACTIONS (2)
  - BACK PAIN [None]
  - CHEST PAIN [None]
